FAERS Safety Report 10503179 (Version 2)
Quarter: 2014Q4

REPORT INFORMATION
  Report Type: Spontaneous
  Country: US (occurrence: US)
  Receive Date: 20141007
  Receipt Date: 20141013
  Transmission Date: 20150528
  Serious: Yes (Death, Hospitalization, Other)
  Sender: FDA-Public Use
  Company Number: US-009507513-1409USA013189

PATIENT
  Sex: Female

DRUGS (3)
  1. TEMODAR [Suspect]
     Active Substance: TEMOZOLOMIDE
     Indication: GLIOBLASTOMA
     Dosage: 250 MG, QD
     Route: 048
     Dates: start: 201404
  2. KEPPRA [Concomitant]
     Active Substance: LEVETIRACETAM
  3. HEXADROL [Concomitant]
     Active Substance: DEXAMETHASONE
     Route: 048

REACTIONS (2)
  - Glioblastoma [Fatal]
  - Hospitalisation [Unknown]

NARRATIVE: CASE EVENT DATE: 2014
